FAERS Safety Report 8848970 (Version 1)
Quarter: 2012Q4

REPORT INFORMATION
  Report Type: Spontaneous
  Country: US (occurrence: None)
  Receive Date: 20121016
  Receipt Date: 20121016
  Transmission Date: 20130627
  Serious: Yes (Death, Hospitalization, Other)
  Sender: FDA-Public Use
  Company Number: VAL_00909_2012

PATIENT
  Age: 20 Year
  Sex: Female

DRUGS (5)
  1. PARLODEL [Suspect]
     Indication: PRODUCT USED FOR UNKNOWN INDICATION
     Dosage: (2 weeks 1day until unknown )
  2. CEPHALOSPORINS DERIVATIVES (UNKNOWN) [Concomitant]
  3. SEDATIVES (UNKNOWN) [Concomitant]
  4. ANALGESICS (UNKNOWN) [Concomitant]
  5. LAXATIVES (UNKNOWN) [Concomitant]

REACTIONS (17)
  - Anaemia [None]
  - Thrombocytopenia [None]
  - Nausea [None]
  - Vomiting [None]
  - Headache [None]
  - Convulsion [None]
  - Fall [None]
  - Circulatory collapse [None]
  - Respiratory arrest [None]
  - Hypertension [None]
  - Hypokalaemia [None]
  - Proteinuria [None]
  - Hypoxic-ischaemic encephalopathy [None]
  - Brain oedema [None]
  - Cardiac arrest [None]
  - Ventricular fibrillation [None]
  - Brain injury [None]
